FAERS Safety Report 12158648 (Version 1)
Quarter: 2016Q1

REPORT INFORMATION
  Report Type: Spontaneous
  Country: US (occurrence: US)
  Receive Date: 20160308
  Receipt Date: 20160308
  Transmission Date: 20160526
  Serious: No
  Sender: FDA-Public Use
  Company Number: US-JNJFOC-20160114264

PATIENT
  Age: 21 Month
  Sex: Male
  Weight: 12.7 kg

DRUGS (1)
  1. INFANTS TYLENOL [Suspect]
     Active Substance: ACETAMINOPHEN
     Indication: PYREXIA
     Dosage: 2 TEASPOOONS, A LITTLE BIT AGO
     Route: 048
     Dates: start: 20160118

REACTIONS (1)
  - Incorrect dose administered [Unknown]
